FAERS Safety Report 8280170-8 (Version None)
Quarter: 2012Q2

REPORT INFORMATION
  Report Type: 
  Country: None (occurrence: None)
  Receive Date: 20120412
  Receipt Date: 20120405
  Transmission Date: 20120825
  Serious: Yes (Hospitalization, Disabling)
  Sender: FDA-Public Use
  Company Number: US-MERCK-1201USA02902

PATIENT
  Age: 59 Year
  Sex: Female

DRUGS (2)
  1. ALENDRONATE SODIUM [Suspect]
     Route: 048
     Dates: start: 20080604, end: 20100111
  2. FOSAMAX [Suspect]
     Indication: OSTEOPENIA
     Route: 048
     Dates: start: 20011001, end: 20080603

REACTIONS (6)
  - LOW TURNOVER OSTEOPATHY [None]
  - TOOTH DISORDER [None]
  - GINGIVAL BLEEDING [None]
  - BREAST ABSCESS [None]
  - THROMBOSIS [None]
  - FEMUR FRACTURE [None]
